FAERS Safety Report 6775826-X (Version None)
Quarter: 2010Q2

REPORT INFORMATION
  Report Type: 
  Country: None (occurrence: None)
  Receive Date: 20100615
  Receipt Date: 20100607
  Transmission Date: 20101027
  Serious: Yes (Other)
  Sender: FDA-Public Use
  Company Number: 007281

PATIENT
  Sex: Female
  Weight: 59.1 kg

DRUGS (6)
  1. CERTOLIZUMAB PEGOL [Suspect]
     Indication: RHEUMATOID ARTHRITIS
     Dosage: SUBCUTANEOUS (SUBCUTANEOUS)
     Route: 058
     Dates: start: 20091119, end: 20100201
  2. CERTOLIZUMAB PEGOL [Suspect]
     Indication: RHEUMATOID ARTHRITIS
     Dosage: SUBCUTANEOUS (SUBCUTANEOUS)
     Route: 058
     Dates: start: 20100211
  3. PREDNISONE [Concomitant]
  4. FOLIC CID [Concomitant]
  5. VICODIN [Concomitant]
  6. LOESTRIN FE 1/20 [Concomitant]

REACTIONS (6)
  - HYPOPHAGIA [None]
  - OROPHARYNGEAL PAIN [None]
  - PHARYNGITIS STREPTOCOCCAL [None]
  - RASH ERYTHEMATOUS [None]
  - RASH GENERALISED [None]
  - RASH PUSTULAR [None]
